FAERS Safety Report 15219453 (Version 1)
Quarter: 2018Q3

REPORT INFORMATION
  Report Type: Spontaneous
  Country: US (occurrence: US)
  Receive Date: 20180731
  Receipt Date: 20180731
  Transmission Date: 20181010
  Serious: Yes (Death, Other)
  Sender: FDA-Public Use
  Company Number: US-SUN PHARMACEUTICAL INDUSTRIES LTD-2018US-179817

PATIENT
  Age: 82 Year
  Sex: Female

DRUGS (1)
  1. METHOTREXATE. [Suspect]
     Active Substance: METHOTREXATE
     Indication: RHEUMATOID ARTHRITIS
     Dosage: 7.5 MG, 1/WEEK, LOW?DOSE
     Route: 065

REACTIONS (6)
  - Pneumonia [Fatal]
  - Respiratory failure [Fatal]
  - Hypotension [Unknown]
  - Pancytopenia [Fatal]
  - Septic shock [Fatal]
  - Acute kidney injury [Unknown]
